FAERS Safety Report 26026925 (Version 4)
Quarter: 2025Q4

REPORT INFORMATION
  Report Type: Spontaneous
  Country: EU (occurrence: EU)
  Receive Date: 20251111
  Receipt Date: 20251216
  Transmission Date: 20260119
  Serious: No
  Sender: BOEHRINGER INGELHEIM
  Company Number: None

PATIENT
  Age: 81 Year
  Sex: Female
  Weight: 73 kg

DRUGS (2)
  1. OFEV [Suspect]
     Active Substance: NINTEDANIB
     Indication: Interstitial lung disease
     Dates: start: 20250711, end: 20250916
  2. OFEV [Suspect]
     Active Substance: NINTEDANIB

REACTIONS (2)
  - Hypertransaminasaemia [Recovered/Resolved]
  - Adverse drug reaction [Recovered/Resolved]

NARRATIVE: CASE EVENT DATE: 20250910
